FAERS Safety Report 5844440-2 (Version None)
Quarter: 2008Q3

REPORT INFORMATION
  Report Type: 
  Country: None (occurrence: None)
  Receive Date: 20080813
  Receipt Date: 20080806
  Transmission Date: 20090109
  Serious: Yes (Disabling)
  Sender: FDA-Public Use
  Company Number: GB-AMGEN-US300874

PATIENT
  Age: 3 Year
  Sex: Female

DRUGS (6)
  1. ENBREL [Suspect]
     Indication: ANKYLOSING SPONDYLITIS
     Route: 058
     Dates: start: 20060801, end: 20080428
  2. VENLAFAXINE HYDROCHLORIDE [Concomitant]
     Dosage: UNKNOWN
     Route: 065
  3. FOLIC ACID [Concomitant]
     Dosage: UNKNOWN
     Route: 065
  4. METHOTREXATE [Concomitant]
     Dosage: UNKNOWN
     Route: 065
  5. AMITRIPTYLINE HCL [Concomitant]
     Dosage: UNKNOWN
     Route: 065
  6. ETORICOXIB [Concomitant]
     Dosage: UNKNOWN
     Route: 065

REACTIONS (5)
  - CONDITION AGGRAVATED [None]
  - DYSAESTHESIA [None]
  - LUPUS-LIKE SYNDROME [None]
  - MYALGIA [None]
  - UVEITIS [None]
